FAERS Safety Report 16754235 (Version 2)
Quarter: 2019Q3

REPORT INFORMATION
  Report Type: Spontaneous
  Country: US (occurrence: US)
  Receive Date: 20190829
  Receipt Date: 20190911
  Transmission Date: 20191005
  Serious: Yes (Other)
  Sender: FDA-Public Use
  Company Number: US-ASTRAZENECA-2019SF10952

PATIENT
  Age: 776 Month
  Sex: Female
  Weight: 98.9 kg

DRUGS (1)
  1. LYNPARZA [Suspect]
     Active Substance: OLAPARIB
     Indication: OVARIAN CANCER
     Route: 048
     Dates: start: 201903

REACTIONS (3)
  - Haemoglobin decreased [Recovered/Resolved]
  - Malignant neoplasm progression [Unknown]
  - Bacterial infection [Unknown]

NARRATIVE: CASE EVENT DATE: 201905
